FAERS Safety Report 15495426 (Version 2)
Quarter: 2018Q4

REPORT INFORMATION
  Report Type: Spontaneous
  Country: US (occurrence: US)
  Receive Date: 20181013
  Receipt Date: 20181115
  Transmission Date: 20190205
  Serious: Yes (Other)
  Sender: FDA-Public Use
  Company Number: US-JNJFOC-20180909027

PATIENT
  Age: 88 Year
  Sex: Male

DRUGS (1)
  1. ERLEADA [Suspect]
     Active Substance: APALUTAMIDE
     Indication: PROSTATE CANCER METASTATIC
     Route: 048
     Dates: start: 20180426, end: 20180827

REACTIONS (6)
  - Anger [Recovering/Resolving]
  - Cognitive disorder [Unknown]
  - Dementia Alzheimer^s type [Unknown]
  - Anxiety [Recovering/Resolving]
  - Dementia [Recovering/Resolving]
  - Memory impairment [Recovering/Resolving]

NARRATIVE: CASE EVENT DATE: 20180820
